FAERS Safety Report 17878201 (Version 1)
Quarter: 2020Q2

REPORT INFORMATION
  Report Type: Spontaneous
  Country: US (occurrence: US)
  Receive Date: 20200610
  Receipt Date: 20200610
  Transmission Date: 20200714
  Serious: Yes (Hospitalization, Other)
  Sender: FDA-Public Use
  Company Number: US-ADVANZ PHARMA-202005006268

PATIENT

DRUGS (7)
  1. LATANOPROST. [Suspect]
     Active Substance: LATANOPROST
     Indication: GLAUCOMA
     Dosage: ONCE AT NIGHT IN THE LEFT EYE
  2. VIGAMOX [Concomitant]
     Active Substance: MOXIFLOXACIN HYDROCHLORIDE
     Dosage: UNK, QID
  3. LOTEPREDNOL ETABONATE [Suspect]
     Active Substance: LOTEPREDNOL ETABONATE
     Indication: GLAUCOMA
     Dosage: THREE TIMES PER DAY IN THE LEFT EYE
  4. DORZOLAMIDE [Suspect]
     Active Substance: DORZOLAMIDE
     Indication: GLAUCOMA
     Dosage: ONCE IN THE MORNING IN THE LEFT EYE
  5. INTERFERON ALFA-2B [Suspect]
     Active Substance: INTERFERON ALFA-2B
     Indication: OCULAR SURFACE SQUAMOUS NEOPLASIA
     Dosage: UNK
     Route: 061
  6. PREDNISOLONE. [Suspect]
     Active Substance: PREDNISOLONE
     Dosage: WEEKLY 4,3,2,1 PREDNISOLONE ACETATE 1% TAPER.
  7. DOXYCYCLINE. [Concomitant]
     Active Substance: DOXYCYCLINE
     Dosage: UNK
     Route: 048

REACTIONS (3)
  - Corneal perforation [Unknown]
  - Ulcerative keratitis [Unknown]
  - Off label use [Unknown]
